FAERS Safety Report 6850911-2 (Version None)
Quarter: 2010Q3

REPORT INFORMATION
  Report Type: 
  Country: None (occurrence: None)
  Receive Date: 20100716
  Receipt Date: 20080222
  Transmission Date: 20110219
  Serious: No
  Sender: FDA-Public Use
  Company Number: US-PFIZER INC-2007089648

PATIENT
  Sex: Female
  Weight: 72.6 kg

DRUGS (7)
  1. CHANTIX [Suspect]
     Indication: SMOKING CESSATION THERAPY
     Dates: start: 20070101, end: 20071011
  2. POTASSIUM CHLORIDE [Concomitant]
  3. VASOTEC [Concomitant]
  4. ENALAPRIL MALEATE [Concomitant]
  5. OXYMORPHONE HYDROCHLORIDE [Concomitant]
  6. PARAFON FORTE [Concomitant]
  7. ATARAX [Concomitant]
     Indication: HYPERSENSITIVITY

REACTIONS (6)
  - DIZZINESS [None]
  - EATING DISORDER [None]
  - HEADACHE [None]
  - INSOMNIA [None]
  - NAUSEA [None]
  - VISUAL IMPAIRMENT [None]
